FAERS Safety Report 8617772-2 (Version None)
Quarter: 2012Q3

REPORT INFORMATION
  Report Type: 
  Country: None (occurrence: None)
  Receive Date: 20120824
  Receipt Date: 20120309
  Transmission Date: 20120928
  Serious: No
  Sender: FDA-Public Use
  Company Number: US-ASTRAZENECA-2012SE14809

PATIENT
  Sex: Female

DRUGS (1)
  1. SYMBICORT [Suspect]
     Indication: ASTHMA
     Dosage: 160/4.5 MCG, TWO PUFFS BID (TWO TIMES A DAY)
     Route: 055

REACTIONS (4)
  - VOMITING [None]
  - TACHYCARDIA [None]
  - MALAISE [None]
  - NAUSEA [None]
